FAERS Safety Report 19019048 (Version 5)
Quarter: 2022Q2

REPORT INFORMATION
  Report Type: Spontaneous
  Country: JP (occurrence: JP)
  Receive Date: 20210316
  Receipt Date: 20220523
  Transmission Date: 20220721
  Serious: Yes (Hospitalization)
  Sender: FDA-Public Use
  Company Number: JP-MSD-M2021-05322

PATIENT
  Age: 63 Year
  Sex: Male
  Weight: 65 kg

DRUGS (7)
  1. KEYTRUDA [Suspect]
     Active Substance: PEMBROLIZUMAB
     Indication: Renal cell carcinoma stage IV
     Dosage: 200 MILLIGRAM, Q3W
     Route: 041
     Dates: start: 20210120, end: 20210210
  2. KEYTRUDA [Suspect]
     Active Substance: PEMBROLIZUMAB
     Dosage: 200 MILLIGRAM, Q3W
     Route: 041
     Dates: start: 20210315
  3. AXITINIB [Suspect]
     Active Substance: AXITINIB
     Indication: Renal cell carcinoma stage IV
     Dosage: 10 MILLIGRAM, 7 X PER WEEK
     Route: 048
     Dates: start: 20210120, end: 20210302
  4. AXITINIB [Suspect]
     Active Substance: AXITINIB
     Dosage: 2 MILLIGRAM, BID
     Route: 048
     Dates: start: 20210322, end: 20210404
  5. AXITINIB [Suspect]
     Active Substance: AXITINIB
     Dosage: 4 MILLIGRAM, BID
     Route: 048
     Dates: start: 20210405
  6. AXITINIB [Suspect]
     Active Substance: AXITINIB
     Dosage: 10 MILLIGRAM
     Route: 048
  7. FAMOTIDINE [Concomitant]
     Active Substance: FAMOTIDINE
     Indication: Gastrointestinal disorder prophylaxis
     Dosage: 20 MILLIGRAM, BID
     Route: 048
     Dates: start: 20210210, end: 20210302

REACTIONS (3)
  - Liver disorder [Recovered/Resolved]
  - Stomatitis [Unknown]
  - Weight decreased [Unknown]

NARRATIVE: CASE EVENT DATE: 20210201
